FAERS Safety Report 10216114 (Version 1)
Quarter: 2014Q2

REPORT INFORMATION
  Report Type: Spontaneous
  Country: US (occurrence: None)
  Receive Date: 20140603
  Receipt Date: 20140603
  Transmission Date: 20141212
  Serious: Yes (Disabling)
  Sender: FDA-Public Use
  Company Number: None

PATIENT
  Age: 61 Year
  Sex: Female
  Weight: 79.38 kg

DRUGS (4)
  1. DULOXETINE 30 MG ACTAVIS [Suspect]
     Indication: DEPRESSION
     Dosage: 3 PILLS ?ONCE DAILY ?TAKEN BY MOUTH
     Route: 048
     Dates: start: 20140111, end: 20140130
  2. DULOXETINE 30 MG ACTAVIS [Suspect]
     Indication: ANXIETY
     Dosage: 3 PILLS ?ONCE DAILY ?TAKEN BY MOUTH
     Route: 048
     Dates: start: 20140111, end: 20140130
  3. DULOXETINE 30 MG ACTAVIS [Suspect]
     Indication: PANIC ATTACK
     Dosage: 3 PILLS ?ONCE DAILY ?TAKEN BY MOUTH
     Route: 048
     Dates: start: 20140111, end: 20140130
  4. DULOXETINE 30 MG ACTAVIS [Suspect]
     Indication: PAIN
     Dosage: 3 PILLS ?ONCE DAILY ?TAKEN BY MOUTH
     Route: 048
     Dates: start: 20140111, end: 20140130

REACTIONS (7)
  - Product substitution issue [None]
  - Anxiety [None]
  - Drug withdrawal syndrome [None]
  - Pain [None]
  - Depression [None]
  - Decreased activity [None]
  - Product quality issue [None]
